FAERS Safety Report 6983838-6 (Version None)
Quarter: 2010Q3

REPORT INFORMATION
  Report Type: 
  Country: None (occurrence: None)
  Receive Date: 20100914
  Receipt Date: 20090408
  Transmission Date: 20110219
  Serious: No
  Sender: FDA-Public Use
  Company Number: US-WYE-H08336309

PATIENT
  Sex: Male
  Weight: 86.71 kg

DRUGS (5)
  1. TORISEL [Suspect]
     Indication: RENAL CELL CARCINOMA
     Route: 042
     Dates: start: 20080901, end: 20090318
  2. VICODIN [Concomitant]
  3. METAMUCIL-2 [Concomitant]
  4. WARFARIN SODIUM [Concomitant]
  5. CALCIUM CARBONATE/VITAMIN D [Concomitant]

REACTIONS (3)
  - INFUSION SITE EXTRAVASATION [None]
  - INJECTION SITE ERYTHEMA [None]
  - INJECTION SITE SWELLING [None]
